FAERS Safety Report 9261964 (Version 1)
Quarter: 2013Q2

REPORT INFORMATION
  Report Type: Spontaneous
  Country: US (occurrence: US)
  Receive Date: 20130429
  Receipt Date: 20130429
  Transmission Date: 20140414
  Serious: Yes (Other)
  Sender: FDA-Public Use
  Company Number: US-PFIZER INC-2013103654

PATIENT
  Age: 77 Year
  Sex: Female
  Weight: 55.33 kg

DRUGS (2)
  1. PREMARIN [Suspect]
     Indication: OSTEOPOROSIS
     Dosage: 0.45 (ONE PO DAILY)
     Route: 048
  2. PREMARIN [Suspect]
     Indication: HYSTERECTOMY

REACTIONS (3)
  - Cystitis [Unknown]
  - Dysuria [Unknown]
  - Pollakiuria [Unknown]
